FAERS Safety Report 10184069 (Version 2)
Quarter: 2014Q3

REPORT INFORMATION
  Report Type: Spontaneous
  Country: DE (occurrence: DE)
  Receive Date: 20140520
  Receipt Date: 20140711
  Transmission Date: 20150326
  Serious: Yes (Death, Hospitalization)
  Sender: FDA-Public Use
  Company Number: DE-VIIV HEALTHCARE LIMITED-D0084001A

PATIENT
  Age: 42 Year
  Sex: Male
  Weight: 67 kg

DRUGS (6)
  1. TRUVADA [Suspect]
     Active Substance: EMTRICITABINE\TENOFOVIR DISOPROXIL FUMARATE
     Indication: HIV INFECTION
     Dosage: 445MG PER DAY
     Route: 048
     Dates: start: 20140407, end: 20140511
  2. TIVICAY [Suspect]
     Active Substance: DOLUTEGRAVIR SODIUM
     Indication: HIV INFECTION
     Dosage: 50MG PER DAY
     Route: 048
     Dates: start: 20140407, end: 20140511
  3. METHADONE [Suspect]
     Active Substance: METHADONE HYDROCHLORIDE
     Indication: DRUG DEPENDENCE
     Dosage: 60MG PER DAY
     Route: 065
  4. PANTOPRAZOLE [Suspect]
     Active Substance: PANTOPRAZOLE SODIUM
     Indication: OESOPHAGITIS
     Dosage: 40MG PER DAY
     Route: 048
     Dates: start: 20140407, end: 20140511
  5. FLUCONAZOL [Suspect]
     Active Substance: FLUCONAZOLE
     Indication: OESOPHAGEAL CANDIDIASIS
     Dosage: 100MG PER DAY
     Route: 048
     Dates: start: 20140407, end: 20140511
  6. METAMIZOL [Suspect]
     Active Substance: METAMIZOLE SODIUM
     Dosage: 3000MG PER DAY
     Route: 065

REACTIONS (9)
  - Sepsis [Fatal]
  - Cerebral haemorrhage [Fatal]
  - Pneumonia [Fatal]
  - Multi-organ failure [Fatal]
  - Renal failure [Fatal]
  - Cerebrovascular accident [Fatal]
  - Coagulopathy [Fatal]
  - Thrombocytopenia [Fatal]
  - Convulsion [Fatal]

NARRATIVE: CASE EVENT DATE: 20140511
